FAERS Safety Report 12388199 (Version 2)
Quarter: 2016Q2

REPORT INFORMATION
  Report Type: Spontaneous
  Country: IQ (occurrence: IQ)
  Receive Date: 20160520
  Receipt Date: 20160531
  Transmission Date: 20160815
  Serious: Yes (Other)
  Sender: FDA-Public Use
  Company Number: IQ-ROCHE-1761101

PATIENT
  Age: 75 Year
  Sex: Male

DRUGS (10)
  1. MABTHERA [Suspect]
     Active Substance: RITUXIMAB
     Indication: DIFFUSE LARGE B-CELL LYMPHOMA
     Dosage: 1 CYCLE PER 21 DAY- 6 CYCLES
     Route: 042
     Dates: start: 201506, end: 201511
  2. CYCLOPHOSPHAMIDE. [Concomitant]
     Active Substance: CYCLOPHOSPHAMIDE
     Indication: NODAL MARGINAL ZONE B-CELL LYMPHOMA
     Dosage: 6 CYCLES
     Route: 065
     Dates: start: 201506
  3. DOXORUBICIN [Concomitant]
     Active Substance: DOXORUBICIN
     Indication: NODAL MARGINAL ZONE B-CELL LYMPHOMA
     Dosage: 6 CYCLES
     Route: 065
     Dates: start: 201506
  4. DOXORUBICIN [Concomitant]
     Active Substance: DOXORUBICIN
     Indication: DIFFUSE LARGE B-CELL LYMPHOMA
     Dosage: 8 CYCLES
     Route: 065
     Dates: start: 201511
  5. VINCRISTINE [Concomitant]
     Active Substance: VINCRISTINE
     Indication: DIFFUSE LARGE B-CELL LYMPHOMA
     Dosage: 8 CYCLES
     Route: 065
     Dates: start: 201511
  6. PREDNISONE. [Concomitant]
     Active Substance: PREDNISONE
     Indication: NODAL MARGINAL ZONE B-CELL LYMPHOMA
     Dosage: 6 CYCLES
     Route: 065
     Dates: start: 201506
  7. VINCRISTINE [Concomitant]
     Active Substance: VINCRISTINE
     Indication: NODAL MARGINAL ZONE B-CELL LYMPHOMA
     Dosage: 6 CYCLES
     Route: 065
     Dates: start: 201506
  8. MABTHERA [Suspect]
     Active Substance: RITUXIMAB
     Indication: NODAL MARGINAL ZONE B-CELL LYMPHOMA
     Dosage: 1 CYCLE PER 21 DAY- 8 CYCLES
     Route: 042
     Dates: start: 201511
  9. CYCLOPHOSPHAMIDE. [Concomitant]
     Active Substance: CYCLOPHOSPHAMIDE
     Indication: DIFFUSE LARGE B-CELL LYMPHOMA
     Dosage: 8 CYCLES
     Route: 065
     Dates: start: 201511
  10. PREDNISONE. [Concomitant]
     Active Substance: PREDNISONE
     Indication: DIFFUSE LARGE B-CELL LYMPHOMA
     Dosage: 8 CYCLES
     Route: 065
     Dates: start: 201511

REACTIONS (3)
  - Skin lesion [Not Recovered/Not Resolved]
  - Off label use [Unknown]
  - Drug ineffective [Unknown]

NARRATIVE: CASE EVENT DATE: 201511
